FAERS Safety Report 7020196-5 (Version None)
Quarter: 2010Q3

REPORT INFORMATION
  Report Type: 
  Country: None (occurrence: None)
  Receive Date: 20100927
  Receipt Date: 20100913
  Transmission Date: 20110219
  Serious: Yes (Hospitalization)
  Sender: FDA-Public Use
  Company Number: 2010P1000575

PATIENT
  Age: 66 Year
  Sex: Male
  Weight: 72.5755 kg

DRUGS (10)
  1. FENTANYL [Suspect]
     Indication: ARTHRALGIA
     Dosage: 50 MCG/HR; 1 PATCH APPLIED Q3D; TDER
     Route: 062
     Dates: start: 20100701
  2. FENTANYL [Suspect]
     Indication: BACK PAIN
     Dosage: 50 MCG/HR; 1 PATCH APPLIED Q3D; TDER
     Route: 062
     Dates: start: 20100701
  3. FENTANYL [Suspect]
     Indication: NEOPLASM MALIGNANT
     Dosage: 50 MCG/HR; 1 PATCH APPLIED Q3D; TDER
     Route: 062
     Dates: start: 20100701
  4. FENTANYL [Suspect]
     Indication: PAIN IN EXTREMITY
     Dosage: 50 MCG/HR; 1 PATCH APPLIED Q3D; TDER
     Route: 062
     Dates: start: 20100701
  5. PERCOCET [Concomitant]
  6. NEURONTIN [Concomitant]
  7. KLONOPIN [Concomitant]
  8. FOSAMAX [Concomitant]
  9. ZOFRAN [Concomitant]
  10. DIPHENOXYLATE HCL + ATROPINE SULFATE [Concomitant]

REACTIONS (8)
  - HAEMOGLOBIN DECREASED [None]
  - IMPAIRED DRIVING ABILITY [None]
  - INTERNATIONAL NORMALISED RATIO DECREASED [None]
  - MUSCULOSKELETAL CHEST PAIN [None]
  - NERVE COMPRESSION [None]
  - PLATELET COUNT DECREASED [None]
  - PNEUMONIA [None]
  - TREATMENT NONCOMPLIANCE [None]
